FAERS Safety Report 9675402 (Version 2)
Quarter: 2014Q1

REPORT INFORMATION
  Report Type: Spontaneous
  Country: GB (occurrence: GB)
  Receive Date: 20131107
  Receipt Date: 20140212
  Transmission Date: 20141002
  Serious: Yes (Other)
  Sender: FDA-Public Use
  Company Number: GB-BANPHARM-20131875

PATIENT
  Age: 49 Year
  Sex: Female

DRUGS (9)
  1. IBUPROFEN UNKNOWN PRODUCT [Suspect]
     Indication: PAIN IN EXTREMITY
     Dosage: 400 MG,
     Route: 048
     Dates: start: 20131029
  2. CITALOPRAM [Suspect]
     Dosage: 10 MG,
  3. DIAZEPAM [Concomitant]
  4. PARACETAMOL [Concomitant]
  5. TEMAZEPAM [Concomitant]
  6. FEMSEVEN [Concomitant]
  7. QVAR [Concomitant]
  8. SALAMOL [Concomitant]
  9. SEREVENT [Concomitant]

REACTIONS (2)
  - Drug interaction [Unknown]
  - Rectal haemorrhage [Recovered/Resolved]
